FAERS Safety Report 6403720-2 (Version None)
Quarter: 2009Q4

REPORT INFORMATION
  Report Type: 
  Country: None (occurrence: None)
  Receive Date: 20091016
  Receipt Date: 20091007
  Transmission Date: 20100525
  Serious: Yes (Other)
  Sender: FDA-Public Use
  Company Number: US-ASTRAZENECA-2009SE19510

PATIENT
  Sex: Female

DRUGS (1)
  1. PRILOSEC OTC [Suspect]
     Route: 048
     Dates: start: 20091007

REACTIONS (3)
  - ACCOMMODATION DISORDER [None]
  - VISUAL ACUITY REDUCED [None]
  - WRONG TECHNIQUE IN DRUG USAGE PROCESS [None]
